FAERS Safety Report 19673104 (Version 1)
Quarter: 2021Q3

REPORT INFORMATION
  Report Type: Report from Study
  Country: JP (occurrence: JP)
  Receive Date: 20210809
  Receipt Date: 20210809
  Transmission Date: 20211014
  Serious: Yes (Other)
  Sender: FDA-Public Use
  Company Number: JP-ACCORD-234366

PATIENT
  Age: 14 Year
  Sex: Female

DRUGS (6)
  1. TACROLIMUS. [Suspect]
     Active Substance: TACROLIMUS
     Indication: GRAFT VERSUS HOST DISEASE
  2. PREDNISOLONE. [Suspect]
     Active Substance: PREDNISOLONE
     Indication: GRAFT VERSUS HOST DISEASE
     Dosage: ON DAY +0 AT AN INITIAL DOSE OF 1 MG/KG/DAY.
  3. FLUDARABINE [Suspect]
     Active Substance: FLUDARABINE PHOSPHATE
     Indication: STEM CELL TRANSPLANT
     Dosage: (30 MG/M2 /DAY, DAYS ?9 TO ?5)
  4. METHOTREXATE. [Suspect]
     Active Substance: METHOTREXATE
     Indication: GRAFT VERSUS HOST DISEASE
     Dosage: 10 MG/M2 ON DAY +1, AND 7 MG/M2 ON DAYS +3 AND + 6 AFTER TRANSPLANTATION
     Route: 042
  5. ANTITHYMOCYTE IMMUNOGLOBULIN [Suspect]
     Active Substance: THYMOCYTE IMMUNE GLOBULIN NOS
     Indication: STEM CELL TRANSPLANT
     Dosage: (THYMOGLOBULIN 1.25 MG/KG/DAY, DAYS ?2 TO ?1).
  6. MELPHALAN. [Suspect]
     Active Substance: MELPHALAN
     Indication: STEM CELL TRANSPLANT
     Dosage: (70 MG/M2 /DAY, DAYS ?4 TO ?3)

REACTIONS (7)
  - Bladder dysfunction [Unknown]
  - BK virus infection [Unknown]
  - Decreased appetite [Unknown]
  - Cystitis haemorrhagic [Unknown]
  - Ovarian disorder [Unknown]
  - Cytomegalovirus infection [Unknown]
  - Osteonecrosis [Unknown]
